FAERS Safety Report 17723619 (Version 2)
Quarter: 2021Q1

REPORT INFORMATION
  Report Type: Report from Study
  Country: US (occurrence: US)
  Receive Date: 20200429
  Receipt Date: 20210309
  Transmission Date: 20210419
  Serious: No
  Sender: FDA-Public Use
  Company Number: NVSC2020US113957

PATIENT
  Age: 70 Year
  Sex: Female

DRUGS (1)
  1. XIIDRA [Suspect]
     Active Substance: LIFITEGRAST
     Indication: DRY EYE
     Dosage: 5 %, ONCE2SDO
     Route: 047
     Dates: start: 20200320

REACTIONS (2)
  - COVID-19 [Unknown]
  - Vision blurred [Unknown]

NARRATIVE: CASE EVENT DATE: 20200401
